FAERS Safety Report 9530863 (Version 1)
Quarter: 2013Q3

REPORT INFORMATION
  Report Type: Spontaneous
  Country: CA (occurrence: CA)
  Receive Date: 20130918
  Receipt Date: 20130918
  Transmission Date: 20140515
  Serious: Yes (Other)
  Sender: FDA-Public Use
  Company Number: CA-009507513-1309CAN006022

PATIENT
  Age: 46 Year
  Sex: Male
  Weight: 111 kg

DRUGS (10)
  1. TEMODAL [Suspect]
     Indication: PRODUCT USED FOR UNKNOWN INDICATION
     Dosage: 75 MG/M2, UNK
     Route: 048
  2. TEMODAL [Suspect]
     Dosage: 200 MG/M2, CYCLICAL
     Route: 048
  3. TEMODAL [Suspect]
     Dosage: 150 MG/M2, CYCLICAL
     Route: 048
  4. DEXAMETHASONE [Suspect]
     Indication: PRODUCT USED FOR UNKNOWN INDICATION
     Dosage: 12 MG, QD
     Route: 048
  5. DEXAMETHASONE [Suspect]
     Dosage: 16 MG, QD
  6. DEXAMETHASONE [Suspect]
     Dosage: 8 MG, QD
     Route: 048
  7. DEXAMETHASONE [Suspect]
     Dosage: 12 MG, QD
     Route: 048
  8. DEXAMETHASONE [Suspect]
     Dosage: 4 MG, QD
     Route: 048
  9. DEXAMETHASONE [Suspect]
     Dosage: 12 MG, QD
     Route: 048
  10. DEXAMETHASONE [Suspect]
     Dosage: 4 MG, QD
     Route: 048

REACTIONS (8)
  - Aphasia [Recovering/Resolving]
  - Cognitive disorder [Recovering/Resolving]
  - Condition aggravated [Recovering/Resolving]
  - Confusional state [Recovering/Resolving]
  - Headache [Recovering/Resolving]
  - Hepatic steatosis [Recovering/Resolving]
  - Hyperglycaemia [Recovering/Resolving]
  - Myopathy [Recovering/Resolving]
